FAERS Safety Report 14901454 (Version 2)
Quarter: 2018Q3

REPORT INFORMATION
  Report Type: Spontaneous
  Country: US (occurrence: US)
  Receive Date: 20180516
  Receipt Date: 20180725
  Transmission Date: 20181010
  Serious: Yes (Death, Hospitalization, Other)
  Sender: FDA-Public Use
  Company Number: US-UCBSA-2018020917

PATIENT
  Sex: Male
  Weight: 7.46 kg

DRUGS (12)
  1. LEVETIRACETAM. [Suspect]
     Active Substance: LEVETIRACETAM
     Indication: PARTIAL SEIZURES
     Dosage: UNKNOWN DOSE
  2. PHENOBARBITAL. [Concomitant]
     Active Substance: PHENOBARBITAL
     Indication: MYOCLONIC EPILEPSY
  3. VIGABATRIN. [Concomitant]
     Active Substance: VIGABATRIN
     Indication: MYOCLONIC EPILEPSY
     Dosage: 175 MG/KG/DAY
  4. LEVETIRACETAM. [Suspect]
     Active Substance: LEVETIRACETAM
     Indication: MYOCLONIC EPILEPSY
  5. VIGABATRIN. [Concomitant]
     Active Substance: VIGABATRIN
     Indication: PARTIAL SEIZURES
     Dosage: 135 MG/KG/DAY
  6. PHENOBARBITAL. [Concomitant]
     Active Substance: PHENOBARBITAL
     Indication: PARTIAL SEIZURES
     Dosage: UNKNOWN DOSE
  7. OXCARBAZEPINE. [Concomitant]
     Active Substance: OXCARBAZEPINE
     Indication: MYOCLONIC EPILEPSY
  8. VIGABATRIN. [Concomitant]
     Active Substance: VIGABATRIN
     Dosage: 125 MG/KG/DAY
  9. VIGABATRIN. [Concomitant]
     Active Substance: VIGABATRIN
     Dosage: 140 MG/KG/DAY
  10. OXCARBAZEPINE. [Concomitant]
     Active Substance: OXCARBAZEPINE
     Indication: PARTIAL SEIZURES
     Dosage: UNKNOWN DOSE
  11. ACTH [Concomitant]
     Active Substance: CORTICOTROPIN
     Indication: MUSCLE SPASMS
     Dosage: UNKNOWN DOSE
  12. CLOBAZAM [Concomitant]
     Active Substance: CLOBAZAM
     Indication: SEIZURE
     Dosage: 1 MG/KG/DAY

REACTIONS (3)
  - Infantile spasms [Recovered/Resolved]
  - Sudden unexplained death in epilepsy [Fatal]
  - Developmental regression [Recovered/Resolved]
